FAERS Safety Report 6616572-2 (Version None)
Quarter: 2010Q1

REPORT INFORMATION
  Report Type: 
  Country: None (occurrence: None)
  Receive Date: 20100305
  Receipt Date: 20100224
  Transmission Date: 20100710
  Serious: Yes (Other)
  Sender: FDA-Public Use
  Company Number: GB-PFIZER INC-2010023838

PATIENT
  Age: 67 Year
  Sex: Male

DRUGS (2)
  1. LIPITOR [Suspect]
     Dosage: 40 MG, UNK
     Dates: start: 20050101, end: 20080401
  2. LIPITOR [Interacting]
     Dosage: 20 MG, UNK
     Dates: start: 20030101

REACTIONS (4)
  - AMNESIA [None]
  - DEPRESSED MOOD [None]
  - DRUG INTERACTION [None]
  - PNEUMONIA [None]
